FAERS Safety Report 6748374-0 (Version None)
Quarter: 2010Q2

REPORT INFORMATION
  Report Type: 
  Country: None (occurrence: None)
  Receive Date: 20100601
  Receipt Date: 20100520
  Transmission Date: 20101027
  Serious: No
  Sender: FDA-Public Use
  Company Number: 2009BI034564

PATIENT
  Age: 62 Year
  Sex: Female

DRUGS (1)
  1. TYSABRI [Suspect]
     Indication: MULTIPLE SCLEROSIS
     Route: 042
     Dates: start: 20090226

REACTIONS (7)
  - AMNESIA [None]
  - BALANCE DISORDER [None]
  - DRUG EFFECT DECREASED [None]
  - FALL [None]
  - OPTIC NEURITIS [None]
  - PERONEAL NERVE PALSY [None]
  - SKELETAL INJURY [None]
